FAERS Safety Report 16087534 (Version 1)
Quarter: 2019Q1

REPORT INFORMATION
  Report Type: Spontaneous
  Country: DE (occurrence: DE)
  Receive Date: 20190319
  Receipt Date: 20190319
  Transmission Date: 20190418
  Serious: Yes (Other)
  Sender: FDA-Public Use
  Company Number: DE-AUROBINDO-AUR-APL-2019-014243

PATIENT

DRUGS (8)
  1. CLONAZEPAM. [Suspect]
     Active Substance: CLONAZEPAM
     Indication: SLEEP DISORDER
     Dosage: 0.5 MILLIGRAM, DAILY (AT NIGHT)
     Route: 065
  2. BUDIPINE [Concomitant]
     Active Substance: BUDIPINE
     Indication: PRODUCT USED FOR UNKNOWN INDICATION
     Dosage: 30 MILLIGRAM, DAILY
     Route: 065
  3. LEVOTHYROXINE. [Concomitant]
     Active Substance: LEVOTHYROXINE
     Indication: HYPOTHYROIDISM
     Dosage: 50 MICROGRAM, DAILY
     Route: 065
  4. RAMIPRIL. [Concomitant]
     Active Substance: RAMIPRIL
     Indication: HYPERTENSION
     Dosage: 2.5 MILLIGRAM, DAILY
     Route: 065
  5. PRAMIPEXOLE TABLET [Suspect]
     Active Substance: PRAMIPEXOLE
     Indication: PARKINSON^S DISEASE
     Dosage: UNK
     Route: 065
  6. PROPRANOLOL [Concomitant]
     Active Substance: PROPRANOLOL HYDROCHLORIDE
     Indication: PRODUCT USED FOR UNKNOWN INDICATION
     Dosage: 80 MILLIGRAM, DAILY
     Route: 065
  7. LEVODOPA/CARBIDOPA [Suspect]
     Active Substance: CARBIDOPA\LEVODOPA
     Indication: PARKINSON^S DISEASE
     Dosage: 6 DOSAGE FORM, DAILY (AT FIVE TIME POINTS PER DAY)
     Route: 065
  8. LORAZEPAM. [Concomitant]
     Active Substance: LORAZEPAM
     Indication: HYPOTHYROIDISM
     Dosage: UNK UNK, AS NECESSARY (0.5 TO 2 TABLETS (1 MG) PER DAY AS NEEDED)
     Route: 065

REACTIONS (9)
  - Depressive symptom [Unknown]
  - Mobility decreased [Unknown]
  - Drug ineffective [Recovered/Resolved]
  - On and off phenomenon [Unknown]
  - Hallucination [Unknown]
  - Dizziness [Recovered/Resolved]
  - Fatigue [Recovered/Resolved]
  - Psychotic disorder [Unknown]
  - Off label use [Recovered/Resolved]
